FAERS Safety Report 22605251 (Version 1)
Quarter: 2023Q2

REPORT INFORMATION
  Report Type: Spontaneous
  Country: US (occurrence: None)
  Receive Date: 20230614
  Receipt Date: 20230614
  Transmission Date: 20230721
  Serious: No
  Sender: FDA-Public Use
  Company Number: None

PATIENT
  Sex: 0

DRUGS (6)
  1. SIMVASTATIN [Suspect]
     Active Substance: SIMVASTATIN
  2. GUANFACINE HYDROCHLORIDE [Suspect]
     Active Substance: GUANFACINE HYDROCHLORIDE
  3. QUETIAPINE [Suspect]
     Active Substance: QUETIAPINE
  4. OMEGA-3-ACID ETHYL ESTERS [Suspect]
     Active Substance: OMEGA-3-ACID ETHYL ESTERS
  5. LITHIUM [Suspect]
     Active Substance: LITHIUM
  6. DIVALPROEX SODIUM [Suspect]
     Active Substance: DIVALPROEX SODIUM

REACTIONS (1)
  - Goitre [None]
